FAERS Safety Report 15117349 (Version 1)
Quarter: 2018Q3

REPORT INFORMATION
  Report Type: Spontaneous
  Country: US (occurrence: US)
  Receive Date: 20180612
  Receipt Date: 20180612
  Transmission Date: 20181010
  Serious: No
  Sender: FDA-Public Use
  Company Number: None

PATIENT
  Age: 71 Year
  Sex: Female
  Weight: 82.35 kg

DRUGS (15)
  1. ESTRACE [Concomitant]
     Active Substance: ESTRADIOL
  2. MULTIPLE VITAMIN WITH MINERALS [Concomitant]
  3. LIOTHYRONINE [Concomitant]
     Active Substance: LIOTHYRONINE
  4. LUNESTA [Concomitant]
     Active Substance: ESZOPICLONE
  5. MELOXICAM. [Concomitant]
     Active Substance: MELOXICAM
  6. GABAPENTIN. [Concomitant]
     Active Substance: GABAPENTIN
  7. DICYCLOMINE [Concomitant]
     Active Substance: DICYCLOMINE HYDROCHLORIDE
  8. COQ10 [Concomitant]
     Active Substance: UBIDECARENONE
  9. VITAMIN D [Concomitant]
     Active Substance: CHOLECALCIFEROL
  10. ELECTRIC MOBILITY SCOOTER [Concomitant]
  11. INDERAL [Concomitant]
     Active Substance: PROPRANOLOL HYDROCHLORIDE
  12. MELOXICAM 7.5 MG [Suspect]
     Active Substance: MELOXICAM
     Indication: RHEUMATOID ARTHRITIS
     Dosage: ?          QUANTITY:2 TABLET(S);?
     Route: 048
     Dates: start: 20180404
  13. ESTRADIOL. [Concomitant]
     Active Substance: ESTRADIOL
  14. SYNTHROID [Concomitant]
     Active Substance: LEVOTHYROXINE SODIUM
  15. RED RICE YEAST [Concomitant]
     Active Substance: DIETARY SUPPLEMENT

REACTIONS (3)
  - Therapy change [None]
  - Tinnitus [None]
  - Sinusitis [None]

NARRATIVE: CASE EVENT DATE: 20180430
